FAERS Safety Report 6512263-7 (Version None)
Quarter: 2009Q4

REPORT INFORMATION
  Report Type: 
  Country: None (occurrence: None)
  Receive Date: 20091222
  Receipt Date: 20090727
  Transmission Date: 20100525
  Serious: No
  Sender: FDA-Public Use
  Company Number: US-ASTRAZENECA-2009UW21291

PATIENT
  Age: 70 Year
  Sex: Female
  Weight: 54.9 kg

DRUGS (2)
  1. CRESTOR [Suspect]
     Indication: BLOOD CHOLESTEROL INCREASED
     Route: 048
     Dates: start: 20090606, end: 20090726
  2. CRESTOR [Suspect]
     Route: 048
     Dates: start: 20090606, end: 20090726

REACTIONS (2)
  - BURNING SENSATION [None]
  - MYALGIA [None]
